FAERS Safety Report 15090460 (Version 2)
Quarter: 2018Q3

REPORT INFORMATION
  Report Type: Spontaneous
  Country: PL (occurrence: PL)
  Receive Date: 20180629
  Receipt Date: 20180705
  Transmission Date: 20181010
  Serious: Yes (Other)
  Sender: FDA-Public Use
  Company Number: PL-ASTELLAS-2018US028008

PATIENT
  Age: 46 Year
  Sex: Male

DRUGS (10)
  1. CEFTRIAXONE. [Concomitant]
     Active Substance: CEFTRIAXONE
     Indication: BACTERIAL INFECTION
     Dosage: UNK UNK, UNKNOWN FREQ.
     Route: 065
  2. VALGANCICLOVIR. [Concomitant]
     Active Substance: VALGANCICLOVIR
     Indication: PRODUCT USED FOR UNKNOWN INDICATION
     Dosage: UNK UNK, UNKNOWN FREQ.
     Route: 065
  3. TACROLIMUS. [Suspect]
     Active Substance: TACROLIMUS
     Indication: RENAL TRANSPLANT
     Dosage: UNK UNK, UNKNOWN FREQ.
     Route: 065
  4. AMOXICILLIN/CLAVULANIC ACID [Suspect]
     Active Substance: AMOXICILLIN\CLAVULANIC ACID
     Indication: BACTERIAL INFECTION
     Dosage: UNK UNK, UNKNOWN FREQ.
     Route: 065
  5. COTRIMOXAZOLE [Concomitant]
     Active Substance: SULFAMETHOXAZOLE\TRIMETHOPRIM
     Indication: PRODUCT USED FOR UNKNOWN INDICATION
     Dosage: UNK UNK, UNKNOWN FREQ.
     Route: 065
  6. CLINDAMYCIN. [Concomitant]
     Active Substance: CLINDAMYCIN
     Indication: BACTERIAL INFECTION
     Dosage: UNK UNK, UNKNOWN FREQ.
     Route: 065
  7. CLARITHROMYCIN. [Concomitant]
     Active Substance: CLARITHROMYCIN
     Indication: BACTERIAL INFECTION
     Dosage: UNK UNK, UNKNOWN FREQ.
     Route: 065
  8. PREDNISONE. [Suspect]
     Active Substance: PREDNISONE
     Indication: RENAL TRANSPLANT
     Dosage: UNK UNK, UNKNOWN FREQ.
     Route: 065
  9. MYCOPHENOLATE MOFETIL. [Suspect]
     Active Substance: MYCOPHENOLATE MOFETIL
     Indication: RENAL TRANSPLANT
     Dosage: UNK UNK, UNKNOWN FREQ.
     Route: 065
  10. IMIPENEM [Concomitant]
     Active Substance: IMIPENEM
     Indication: BACTERIAL INFECTION
     Dosage: UNK UNK, UNKNOWN FREQ.
     Route: 065

REACTIONS (6)
  - Escherichia infection [Recovering/Resolving]
  - Lung infection [Recovering/Resolving]
  - Drug ineffective [Unknown]
  - Polycystic liver disease [Unknown]
  - Candida infection [Recovering/Resolving]
  - Bronchopulmonary aspergillosis [Recovered/Resolved]
